FAERS Safety Report 15188689 (Version 2)
Quarter: 2018Q3

REPORT INFORMATION
  Report Type: Spontaneous
  Country: US (occurrence: US)
  Receive Date: 20180724
  Receipt Date: 20180820
  Transmission Date: 20181010
  Serious: No
  Sender: FDA-Public Use
  Company Number: US-PFIZER INC-2018296252

PATIENT
  Age: 63 Year
  Sex: Female
  Weight: 64.85 kg

DRUGS (2)
  1. IBRANCE [Suspect]
     Active Substance: PALBOCICLIB
     Dosage: 125 MG, CYCLIC (D1?21 Q28 DAYS)
     Route: 048
     Dates: start: 201701, end: 201808
  2. IBRANCE [Suspect]
     Active Substance: PALBOCICLIB
     Indication: BREAST CANCER METASTATIC
     Dosage: 125 MG, CYCLIC  (DAY 1 TO 21 EVERY 28 DAYS)
     Route: 048
     Dates: start: 201701, end: 201807

REACTIONS (1)
  - Neoplasm progression [Unknown]
